FAERS Safety Report 6865212-6 (Version None)
Quarter: 2010Q3

REPORT INFORMATION
  Report Type: 
  Country: None (occurrence: None)
  Receive Date: 20100721
  Receipt Date: 20080624
  Transmission Date: 20110219
  Serious: No
  Sender: FDA-Public Use
  Company Number: US-PFIZER INC-2008032023

PATIENT
  Sex: Female

DRUGS (1)
  1. CHANTIX [Suspect]

REACTIONS (8)
  - CIRCUMSTANCE OR INFORMATION CAPABLE OF LEADING TO MEDICATION ERROR [None]
  - DECREASED APPETITE [None]
  - FEELING ABNORMAL [None]
  - HYPERVENTILATION [None]
  - NAUSEA [None]
  - SCREAMING [None]
  - SOMNOLENCE [None]
  - UNEVALUABLE EVENT [None]
